FAERS Safety Report 8043460-X (Version None)
Quarter: 2012Q1

REPORT INFORMATION
  Report Type: 
  Country: None (occurrence: None)
  Receive Date: 20120112
  Receipt Date: 20120110
  Transmission Date: 20120608
  Serious: No
  Sender: FDA-Public Use
  Company Number: US-B.I. PHARMACEUTICALS,INC./RIDGEFIELD-2012-BP-00060BP

PATIENT
  Age: 81 Year
  Sex: Male

DRUGS (4)
  1. PRADAXA [Suspect]
     Dosage: 150 MG
     Route: 048
     Dates: start: 20101201
  2. ATENOLOL [Concomitant]
     Dosage: 50 MG
     Route: 048
  3. NIASPAN [Concomitant]
     Dosage: 100 MG
     Route: 048
  4. PRADAXA [Suspect]
     Indication: ATRIAL FIBRILLATION
     Dosage: 300 MG
     Route: 048

REACTIONS (3)
  - ASTHENIA [None]
  - FEELING COLD [None]
  - CHILLS [None]
